FAERS Safety Report 5132503-9 (Version None)
Quarter: 2006Q4

REPORT INFORMATION
  Report Type: 
  Country: None (occurrence: None)
  Receive Date: 20061020
  Receipt Date: 20061020
  Transmission Date: 20070319
  Serious: No
  Sender: FDA-Public Use
  Company Number: None

PATIENT
  Sex: Female
  Weight: 70.7611 kg

DRUGS (2)
  1. MEDROXYPROGESTERONE [Suspect]
     Indication: CONTRACEPTION
     Dosage: 150 MG/ML Q11-12 WKS IM GIVEN 1X IM DOSE
     Route: 030
     Dates: start: 20060928
  2. MEDROXYPROGESTERONE [Suspect]
     Indication: DRUG THERAPY
     Dosage: 150 MG/ML Q11-12 WKS IM GIVEN 1X IM DOSE
     Route: 030
     Dates: start: 20060928

REACTIONS (4)
  - NO REACTION ON PREVIOUS EXPOSURE TO DRUG [None]
  - PRURITUS [None]
  - RASH MACULAR [None]
  - URTICARIA [None]
